FAERS Safety Report 23056337 (Version 1)
Quarter: 2023Q4

REPORT INFORMATION
  Report Type: Spontaneous
  Country: US (occurrence: US)
  Receive Date: 20231011
  Receipt Date: 20231011
  Transmission Date: 20240110
  Serious: Yes (Other)
  Sender: FDA-Public Use
  Company Number: US-TEVA-2023-US-2933109

PATIENT
  Age: 5 Year
  Sex: Female

DRUGS (8)
  1. TRIAMCINOLONE [Suspect]
     Active Substance: TRIAMCINOLONE
     Indication: Product used for unknown indication
     Dosage: 40 MG
     Route: 056
  2. LIDOCAINE [Concomitant]
     Active Substance: LIDOCAINE
     Indication: Anaesthetic ophthalmic procedure
     Dosage: 1:1 MIXTURE OF 2% LIDOCAINE AND 0.5% BUPIVACAINE
     Route: 050
  3. BUPIVACAINE [Concomitant]
     Active Substance: BUPIVACAINE
     Indication: Anaesthetic ophthalmic procedure
     Dosage: 1:1 MIXTURE OF 2% LIDOCAINE AND 0.5% BUPIVACAINE
     Route: 050
  4. CEFAZOLIN [Concomitant]
     Active Substance: CEFAZOLIN
     Indication: Product used for unknown indication
     Route: 057
  5. DEXAMETHASONE [Concomitant]
     Active Substance: DEXAMETHASONE
     Indication: Product used for unknown indication
     Route: 057
  6. Neomycin/polymixin-B/dexamethasone [Concomitant]
     Indication: Product used for unknown indication
     Route: 061
  7. ATROPINE [Concomitant]
     Active Substance: ATROPINE
     Indication: Product used for unknown indication
     Route: 065
  8. VORETIGENE NEPARVOVEC-RZYL [Concomitant]
     Active Substance: VORETIGENE NEPARVOVEC-RZYL
     Indication: Leber^s congenital amaurosis
     Route: 050

REACTIONS (1)
  - Ocular hypertension [Recovered/Resolved]
